FAERS Safety Report 11342235 (Version 1)
Quarter: 2015Q3

REPORT INFORMATION
  Report Type: Spontaneous
  Country: FR (occurrence: FR)
  Receive Date: 20150805
  Receipt Date: 20150805
  Transmission Date: 20151125
  Serious: Yes (Hospitalization)
  Sender: FDA-Public Use
  Company Number: FR-ASTRAZENECA-2015SE74580

PATIENT
  Age: 26453 Day
  Sex: Male
  Weight: 69 kg

DRUGS (4)
  1. KARDEGIC [Suspect]
     Active Substance: ASPIRIN LYSINE
     Route: 048
     Dates: start: 20150327, end: 20150327
  2. VERAPAMIL [Concomitant]
     Active Substance: VERAPAMIL HYDROCHLORIDE
     Dates: start: 20150327
  3. BRILIQUE [Suspect]
     Active Substance: TICAGRELOR
     Indication: ACUTE CORONARY SYNDROME
     Route: 048
     Dates: start: 20150327
  4. REOPRO [Concomitant]
     Active Substance: ABCIXIMAB
     Dates: start: 20150327

REACTIONS (7)
  - Intracranial pressure increased [Recovering/Resolving]
  - Cerebral haemorrhage [Recovering/Resolving]
  - Pneumonia aspiration [Recovering/Resolving]
  - Cerebral haematoma [Recovering/Resolving]
  - Haemorrhage intracranial [Recovering/Resolving]
  - Coma [Recovering/Resolving]
  - Brain midline shift [Recovering/Resolving]

NARRATIVE: CASE EVENT DATE: 20150328
